FAERS Safety Report 10151622 (Version 3)
Quarter: 2014Q2

REPORT INFORMATION
  Report Type: Report from Study
  Country: DE (occurrence: DE)
  Receive Date: 20140505
  Receipt Date: 20140624
  Transmission Date: 20141212
  Serious: Yes (Hospitalization)
  Sender: FDA-Public Use
  Company Number: DE-ROCHE-1392897

PATIENT
  Age: 64 Year
  Sex: Female
  Weight: 68 kg

DRUGS (30)
  1. BEVACIZUMAB [Suspect]
     Indication: OVARIAN CANCER
     Dosage: LAST DOSE PRIOR TO SAE 07 APR 2014 AND 10/JUN/2014
     Route: 042
     Dates: start: 20140217
  2. GEMCITABINE [Suspect]
     Indication: OVARIAN CANCER
     Dosage: LAST DOSE PRIOR TO SAE 07 APR 2014 AND 10/JUN/2014
     Route: 042
     Dates: start: 20140217
  3. CARBOPLATIN [Suspect]
     Indication: OVARIAN CANCER
     Dosage: LAST DOSE PRIOR TO SAE 07 APR 2014 AND 10/JUN/2014
     Route: 042
     Dates: start: 20140217
  4. CIPROBAY [Concomitant]
     Route: 065
     Dates: start: 20140521, end: 20140526
  5. ZOFRAN [Concomitant]
     Route: 065
     Dates: start: 20140422
  6. ZOPICLON [Concomitant]
     Indication: SLEEP DISORDER
     Route: 065
  7. OLMETEC PLUS [Concomitant]
     Indication: HYPERTENSION
     Route: 065
     Dates: start: 20090701
  8. NEBIVOLOL [Concomitant]
     Indication: HYPERTENSION
     Route: 065
     Dates: start: 20090701
  9. SAROTEN 25 [Concomitant]
     Indication: DEPRESSION
     Route: 065
     Dates: start: 20130121
  10. PANTOZOL (GERMANY) [Concomitant]
     Indication: PROPHYLAXIS
     Route: 065
     Dates: start: 20130121
  11. PANTOZOL (GERMANY) [Concomitant]
     Route: 048
     Dates: start: 201405
  12. BIFITERAL [Concomitant]
     Indication: CONSTIPATION
     Route: 065
     Dates: start: 20130121
  13. MELNEURIN [Concomitant]
     Route: 065
     Dates: start: 20130218
  14. FENTANYL [Concomitant]
     Indication: PAIN
     Route: 065
     Dates: start: 20131021
  15. IBUFLAM [Concomitant]
     Indication: PAIN
     Route: 065
     Dates: start: 20130307
  16. LYRICA [Concomitant]
     Indication: PAIN
     Route: 065
     Dates: start: 20130426
  17. NOVAMINSULFON [Concomitant]
     Indication: PAIN
     Route: 065
     Dates: start: 20130311
  18. DEXAMETHASONE [Concomitant]
     Route: 065
     Dates: start: 20140302, end: 20140316
  19. DEXAMETHASONE [Concomitant]
     Route: 065
     Dates: start: 20140422, end: 20140428
  20. DEXAMETHASONE [Concomitant]
     Route: 065
     Dates: start: 20140602, end: 20140610
  21. AMPICILLIN [Concomitant]
     Route: 065
     Dates: start: 20140316, end: 20140321
  22. LEMOCIN (GERMANY) [Concomitant]
     Route: 065
     Dates: start: 20140316, end: 20140319
  23. VOMEX A [Concomitant]
     Route: 065
     Dates: start: 20140407
  24. ZOLPIDEM [Concomitant]
     Indication: SLEEP DISORDER
     Route: 065
     Dates: start: 20140407
  25. LAXOBERAL [Concomitant]
     Indication: CONSTIPATION
     Route: 065
     Dates: start: 20140217
  26. ONDANSETRON [Concomitant]
     Route: 065
     Dates: start: 20140422
  27. MONURIL [Concomitant]
     Route: 065
     Dates: start: 20140519, end: 20140519
  28. APREPITANT [Concomitant]
     Route: 065
     Dates: start: 20140320
  29. ATACAND [Concomitant]
     Indication: HYPERTENSION
     Route: 048
     Dates: start: 2011
  30. IBUPROFEN [Concomitant]
     Indication: PAIN
     Route: 048
     Dates: start: 20140509

REACTIONS (1)
  - Anaemia [Recovered/Resolved]
